FAERS Safety Report 23625478 (Version 1)
Quarter: 2024Q1

REPORT INFORMATION
  Report Type: Spontaneous
  Country: GB (occurrence: GB)
  Receive Date: 20240313
  Receipt Date: 20240313
  Transmission Date: 20240409
  Serious: Yes (Hospitalization)
  Sender: FDA-Public Use
  Company Number: None

PATIENT
  Age: 67 Year
  Sex: Female

DRUGS (11)
  1. AMITRIPTYLINE [Suspect]
     Active Substance: AMITRIPTYLINE
     Dosage: NOCTE
     Route: 065
     Dates: start: 20191001, end: 20240219
  2. SERTRALINE [Suspect]
     Active Substance: SERTRALINE HYDROCHLORIDE
     Dosage: MANE
     Route: 065
     Dates: start: 202208, end: 20240219
  3. LEVETIRACETAM [Concomitant]
     Active Substance: LEVETIRACETAM
  4. SENNA [Concomitant]
     Active Substance: SENNA LEAF\SENNOSIDES\SENNOSIDES A AND B
  5. MOVICOL [Concomitant]
     Active Substance: POLYETHYLENE GLYCOL 3350\POTASSIUM CHLORIDE\SODIUM BICARBONATE\SODIUM CHLORIDE
  6. FOLIC ACID [Concomitant]
     Active Substance: FOLIC ACID
  7. BECLOMETHASONE [Concomitant]
     Active Substance: BECLOMETHASONE
  8. ARIPIPRAZOLE [Suspect]
     Active Substance: ARIPIPRAZOLE
     Dosage: NOCTE
     Route: 065
     Dates: start: 20230801, end: 20240218
  9. DIHYDROCODEINE [Concomitant]
     Active Substance: DIHYDROCODEINE
  10. PROMETHAZINE [Suspect]
     Active Substance: PROMETHAZINE HYDROCHLORIDE
     Dosage: 25MG NOCTE; DURATION: 569 DAYS
     Route: 065
     Dates: start: 20220801, end: 20240221
  11. BISOPROLOL [Concomitant]
     Active Substance: BISOPROLOL\BISOPROLOL FUMARATE

REACTIONS (6)
  - Heart rate [Recovering/Resolving]
  - Hallucination, auditory [Recovering/Resolving]
  - Neuroleptic malignant syndrome [Recovering/Resolving]
  - Blood creatine phosphokinase [Recovering/Resolving]
  - Mental status changes [Recovering/Resolving]
  - Urinary retention [Recovering/Resolving]

NARRATIVE: CASE EVENT DATE: 20240219
